FAERS Safety Report 4320358-1 (Version None)
Quarter: 2004Q1

REPORT INFORMATION
  Report Type: 
  Country: None (occurrence: None)
  Receive Date: 20040316
  Receipt Date: 20031218
  Transmission Date: 20041129
  Serious: No
  Sender: FDA-Public Use
  Company Number: 03H-163-0243953-00

PATIENT
  Age: 24 Year
  Sex: Female
  Weight: 69.8539 kg

DRUGS (2)
  1. BUPIVACAINE HCL [Suspect]
     Indication: ANALGESIC EFFECT
     Dosage: 15 CC, OVER 20', EPIDURAL
     Route: 008
     Dates: start: 20031208, end: 20031208
  2. LIDOCAINE [Concomitant]

REACTIONS (2)
  - BLOOD PRESSURE DECREASED [None]
  - INADEQUATE ANALGESIA [None]
